FAERS Safety Report 6071357-3 (Version None)
Quarter: 2009Q1

REPORT INFORMATION
  Report Type: 
  Country: None (occurrence: None)
  Receive Date: 20090202
  Receipt Date: 20081021
  Transmission Date: 20090719
  Serious: Yes (Other)
  Sender: FDA-Public Use
  Company Number: 179039USA

PATIENT

DRUGS (1)
  1. NICARDIPINE HYDROCHLORIDE [Suspect]
     Dosage: INTRAVENOUS DRIP

REACTIONS (1)
  - HYPOTENSION [None]
